FAERS Safety Report 13034131 (Version 1)
Quarter: 2016Q4

REPORT INFORMATION
  Report Type: Spontaneous
  Country: US (occurrence: US)
  Receive Date: 20161216
  Receipt Date: 20161216
  Transmission Date: 20170207
  Serious: No
  Sender: FDA-Public Use
  Company Number: US-ENDO PHARMACEUTICALS INC.-2016-002776

PATIENT
  Sex: Female

DRUGS (3)
  1. RHEUMATREX [Suspect]
     Active Substance: METHOTREXATE SODIUM
     Route: 048
  2. RHEUMATREX [Suspect]
     Active Substance: METHOTREXATE SODIUM
     Route: 048
  3. RHEUMATREX [Suspect]
     Active Substance: METHOTREXATE SODIUM
     Indication: PRODUCT USED FOR UNKNOWN INDICATION
     Route: 048

REACTIONS (2)
  - Gingival bleeding [Recovered/Resolved]
  - Gingival blister [Recovered/Resolved]
